FAERS Safety Report 15834807 (Version 2)
Quarter: 2019Q1

REPORT INFORMATION
  Report Type: Spontaneous
  Country: PL (occurrence: PL)
  Receive Date: 20190116
  Receipt Date: 20190218
  Transmission Date: 20190417
  Serious: Yes (Hospitalization)
  Sender: FDA-Public Use
  Company Number: PHHY2019PL007253

PATIENT
  Age: 82 Year
  Sex: Female
  Weight: 90 kg

DRUGS (1)
  1. TRAVATAN [Suspect]
     Active Substance: TRAVOPROST
     Indication: GLAUCOMA
     Dosage: UNK, QD
     Route: 047
     Dates: start: 20181203, end: 20181208

REACTIONS (7)
  - Visual acuity reduced [Recovered/Resolved]
  - Conjunctival hyperaemia [Unknown]
  - Intraocular pressure increased [Recovered/Resolved]
  - Corneal oedema [Recovered/Resolved]
  - Corneal epithelium defect [Recovered/Resolved]
  - Eye pain [Recovered/Resolved]
  - Conjunctival oedema [Unknown]

NARRATIVE: CASE EVENT DATE: 20181203
